FAERS Safety Report 9778645 (Version 1)
Quarter: 2013Q4

REPORT INFORMATION
  Report Type: Spontaneous
  Country: US (occurrence: US)
  Receive Date: 20131223
  Receipt Date: 20131223
  Transmission Date: 20140711
  Serious: Yes (Other)
  Sender: FDA-Public Use
  Company Number: US-CUBIST PHARMACEUTICAL, INC.-2013CBST001327

PATIENT
  Sex: 0

DRUGS (6)
  1. CUBICIN [Suspect]
     Indication: STAPHYLOCOCCAL BACTERAEMIA
     Dosage: 6 MG/KG, QD
     Route: 065
  2. CUBICIN [Suspect]
     Dosage: 8 MG/KG, QD
     Route: 065
  3. CUBICIN [Suspect]
     Dosage: 10 MG/KG, QD
     Route: 065
  4. GENTAMICIN [Suspect]
     Indication: STAPHYLOCOCCAL BACTERAEMIA
     Dosage: 5 MG/KG, QD
     Route: 065
  5. NAFCILLIN [Concomitant]
     Indication: STAPHYLOCOCCAL BACTERAEMIA
     Dosage: 2 G, Q24H
     Route: 042
  6. STEROIDS [Concomitant]
     Indication: IMMUNE THROMBOCYTOPENIC PURPURA
     Dosage: UNK UNK UNK
     Route: 065

REACTIONS (3)
  - Staphylococcal bacteraemia [Recovered/Resolved]
  - Treatment failure [Recovered/Resolved]
  - Antimicrobial susceptibility test resistant [Recovered/Resolved]
